FAERS Safety Report 13451501 (Version 1)
Quarter: 2017Q2

REPORT INFORMATION
  Report Type: Spontaneous
  Country: CA (occurrence: CA)
  Receive Date: 20170418
  Receipt Date: 20170418
  Transmission Date: 20170830
  Serious: Yes (Other)
  Sender: FDA-Public Use
  Company Number: CA-TEVA-759591ACC

PATIENT
  Age: 87 Year
  Sex: Female

DRUGS (4)
  1. TEVA LACTULOSE [Suspect]
     Active Substance: LACTULOSE
     Indication: CONSTIPATION
     Dosage: 1 DOSAGE FORMS DAILY; SACHETS, 1 SACHET PER DAY WITH WATER
     Dates: start: 20170407
  2. DILAUDID [Concomitant]
     Active Substance: HYDROMORPHONE HYDROCHLORIDE
  3. SENNA [Concomitant]
     Active Substance: SENNA LEAF\SENNOSIDES\SENNOSIDES A AND B
  4. PANTOPRAZOLE [Concomitant]
     Active Substance: PANTOPRAZOLE
     Dosage: 40 MILLIGRAM DAILY; IN MORNING

REACTIONS (6)
  - Drug hypersensitivity [Unknown]
  - Pain [Unknown]
  - Swollen tongue [Unknown]
  - Constipation [Recovering/Resolving]
  - Choking [Recovering/Resolving]
  - Dizziness [Recovering/Resolving]

NARRATIVE: CASE EVENT DATE: 201704
